FAERS Safety Report 13548951 (Version 1)
Quarter: 2017Q2

REPORT INFORMATION
  Report Type: Spontaneous
  Country: US (occurrence: US)
  Receive Date: 20170516
  Receipt Date: 20170516
  Transmission Date: 20170830
  Serious: No
  Sender: FDA-Public Use
  Company Number: US-PFIZER INC-2017210836

PATIENT
  Age: 34 Year
  Sex: Female

DRUGS (1)
  1. PREGABALIN. [Suspect]
     Active Substance: PREGABALIN
     Dosage: UNK

REACTIONS (3)
  - Disturbance in attention [Unknown]
  - Drug ineffective [Unknown]
  - Abnormal behaviour [Unknown]
